FAERS Safety Report 8852938 (Version 2)
Quarter: 2013Q1

REPORT INFORMATION
  Report Type: Spontaneous
  Country: CA (occurrence: CA)
  Receive Date: 20121022
  Receipt Date: 20130117
  Transmission Date: 20140127
  Serious: Yes (Other)
  Sender: FDA-Public Use
  Company Number: CA-BAYER-2012-106319

PATIENT
  Sex: Female

DRUGS (1)
  1. CANESTEN VAGINAL CREAM [Suspect]

REACTIONS (1)
  - Vaginal haemorrhage [None]
